FAERS Safety Report 5013501-2 (Version None)
Quarter: 2006Q2

REPORT INFORMATION
  Report Type: 
  Country: None (occurrence: None)
  Receive Date: 20060525
  Receipt Date: 20060525
  Transmission Date: 20061013
  Serious: Yes (Other)
  Sender: FDA-Public Use
  Company Number: None

PATIENT
  Sex: Female
  Weight: 66.6788 kg

DRUGS (11)
  1. CYMBALTA [Suspect]
     Indication: DEPRESSION
     Dosage: 10MG X7 DAYS, THEN20MG ONCE DAILY ORAL
     Route: 048
     Dates: start: 20060217, end: 20060324
  2. CYMBALTA [Suspect]
     Indication: PAIN
     Dosage: 10MG X7 DAYS, THEN20MG ONCE DAILY ORAL
     Route: 048
     Dates: start: 20060217, end: 20060324
  3. ZOLPIDEM TARTRATE [Concomitant]
  4. RIZATRIPTAN [Concomitant]
  5. CETIRIZINE [Concomitant]
  6. BLACK COHOSH [Concomitant]
  7. CITRACAL [Concomitant]
  8. FAMOTIDINE [Concomitant]
  9. PSEUDOEPHEDRINE HCL [Concomitant]
  10. ASCORBIC ACID [Concomitant]
  11. MULTIVITAMIN [Concomitant]

REACTIONS (2)
  - ALANINE AMINOTRANSFERASE INCREASED [None]
  - INCORRECT DOSE ADMINISTERED [None]
